FAERS Safety Report 8421799-3 (Version None)
Quarter: 2012Q2

REPORT INFORMATION
  Report Type: 
  Country: None (occurrence: None)
  Receive Date: 20120601
  Receipt Date: 20120516
  Transmission Date: 20120825
  Serious: Yes (Life-Threatening, Hospitalization)
  Sender: FDA-Public Use
  Company Number: VAL_00753_2012

PATIENT
  Sex: Female
  Weight: 40 kg

DRUGS (19)
  1. OLMESARTAN MEDOXOMIL [Concomitant]
  2. FOSRENOL [Concomitant]
  3. CARNACULIN [Concomitant]
  4. CELECTOL [Concomitant]
  5. NORVASC [Concomitant]
  6. CALCIUM CARBONATE [Concomitant]
  7. NIZATIDINE [Concomitant]
  8. NASONEX [Concomitant]
  9. ROCALTROL [Suspect]
     Indication: RENAL FAILURE CHRONIC
     Dosage: (0.25 UG 3X/WEEK, ADMINISTERED ON MONDAY, WEDNESDAY AND FRIDAY FOR HEMODIALYSIS ORAL)
     Route: 048
     Dates: start: 20120227, end: 20120319
  10. HEPARIN [Concomitant]
  11. NESPO [Concomitant]
  12. SHAKUYAKUKANZOTO [Concomitant]
  13. LEVOTHYROXINE SODIUM [Concomitant]
  14. RISUMIC [Concomitant]
  15. PEMIROLAST POTASSIUM [Concomitant]
  16. CELEBREX [Concomitant]
  17. NITRAZEPAM [Concomitant]
  18. CLIVARINE [Concomitant]
  19. EBASTINE [Concomitant]

REACTIONS (9)
  - CARDIAC FAILURE [None]
  - WHITE BLOOD CELL COUNT INCREASED [None]
  - WEIGHT DECREASED [None]
  - APHAGIA [None]
  - PRODUCTIVE COUGH [None]
  - RALES [None]
  - HYPEREOSINOPHILIC SYNDROME [None]
  - RED BLOOD CELL COUNT DECREASED [None]
  - ASTHMA [None]
